FAERS Safety Report 13872588 (Version 2)
Quarter: 2017Q3

REPORT INFORMATION
  Report Type: Report from Study
  Country: US (occurrence: US)
  Receive Date: 20170816
  Receipt Date: 20170823
  Transmission Date: 20171127
  Serious: Yes (Hospitalization)
  Sender: FDA-Public Use
  Company Number: US-EXELIXIS-CABO-17010155

PATIENT
  Sex: Female

DRUGS (3)
  1. CALTRATE [Concomitant]
     Active Substance: CALCIUM CARBONATE
  2. CABOMETYX [Suspect]
     Active Substance: CABOZANTINIB S-MALATE
     Indication: RENAL CANCER
     Dosage: 40 MG, QD
     Route: 048
     Dates: start: 201610
  3. COUMADIN [Concomitant]
     Active Substance: WARFARIN SODIUM

REACTIONS (2)
  - Impaired healing [Not Recovered/Not Resolved]
  - Blood blister [Not Recovered/Not Resolved]
